FAERS Safety Report 9723379 (Version 1)
Quarter: 2013Q4

REPORT INFORMATION
  Report Type: Spontaneous
  Country: US (occurrence: US)
  Receive Date: 20131202
  Receipt Date: 20131202
  Transmission Date: 20140711
  Serious: No
  Sender: FDA-Public Use
  Company Number: US-GLAXOSMITHKLINE-A1044770A

PATIENT
  Sex: Female

DRUGS (1)
  1. FLONASE [Suspect]
     Indication: SINUS DISORDER
     Route: 065

REACTIONS (3)
  - Drug ineffective [Unknown]
  - Sinus disorder [Unknown]
  - Nasal dryness [Unknown]
